FAERS Safety Report 23796077 (Version 1)
Quarter: 2024Q2

REPORT INFORMATION
  Report Type: Report from Study
  Country: DE (occurrence: DE)
  Receive Date: 20240429
  Receipt Date: 20240429
  Transmission Date: 20240716
  Serious: Yes (Hospitalization)
  Sender: FDA-Public Use
  Company Number: DE-ABBVIE-5733999

PATIENT
  Age: 91 Year
  Sex: Male

DRUGS (2)
  1. CARBIDOPA\LEVODOPA [Suspect]
     Active Substance: CARBIDOPA\LEVODOPA
     Indication: Parkinson^s disease
     Dosage: MD:8,0ML; CRT:2,6ML/H; ED:0,5ML
     Route: 050
     Dates: start: 20150923
  2. CARBIDOPA\LEVODOPA [Suspect]
     Active Substance: CARBIDOPA\LEVODOPA

REACTIONS (3)
  - Urinary tract disorder [Unknown]
  - Device dislocation [Unknown]
  - Device colour issue [Unknown]

NARRATIVE: CASE EVENT DATE: 20240420
